FAERS Safety Report 7368013-8 (Version None)
Quarter: 2011Q1

REPORT INFORMATION
  Report Type: 
  Country: None (occurrence: None)
  Receive Date: 20110322
  Receipt Date: 20110303
  Transmission Date: 20110831
  Serious: Yes (Life-Threatening, Hospitalization)
  Sender: FDA-Public Use
  Company Number: NL-BAYER-2011-019696

PATIENT
  Sex: Female

DRUGS (1)
  1. GADOVIST [Suspect]
     Indication: NUCLEAR MAGNETIC RESONANCE IMAGING
     Dosage: UNK
     Dates: start: 20110303, end: 20110303

REACTIONS (3)
  - CIRCULATORY COLLAPSE [None]
  - HEADACHE [None]
  - OROPHARYNGEAL DISCOMFORT [None]
